FAERS Safety Report 8005827-5 (Version None)
Quarter: 2011Q4

REPORT INFORMATION
  Report Type: 
  Country: None (occurrence: None)
  Receive Date: 20111223
  Receipt Date: 20111220
  Transmission Date: 20120403
  Serious: Yes (Other)
  Sender: FDA-Public Use
  Company Number: KR-ELI_LILLY_AND_COMPANY-KR201112005899

PATIENT
  Age: 75 Year
  Sex: Male

DRUGS (2)
  1. HUMALOG MIX 75/25 [Suspect]
     Indication: DIABETES MELLITUS
     Dosage: 42 U, UNKNOWN
     Dates: start: 20111001
  2. HUMALOG MIX 75/25 [Suspect]
     Dosage: 12 U, UNKNOWN
     Dates: start: 20111001

REACTIONS (1)
  - JAUNDICE [None]
